FAERS Safety Report 21317085 (Version 3)
Quarter: 2022Q4

REPORT INFORMATION
  Report Type: Spontaneous
  Country: US (occurrence: US)
  Receive Date: 20220911
  Receipt Date: 20221026
  Transmission Date: 20230112
  Serious: No
  Sender: FDA-Public Use
  Company Number: US-SA-SAC20220819000940

PATIENT
  Sex: Male

DRUGS (1)
  1. ALLEGRA ALLERGY [Suspect]
     Active Substance: FEXOFENADINE HYDROCHLORIDE
     Indication: Urticaria
     Dosage: 60 MG
     Route: 065

REACTIONS (6)
  - Urticaria [Unknown]
  - Sinus disorder [Unknown]
  - Dry eye [Unknown]
  - Dry eye [Unknown]
  - Nasal dryness [Unknown]
  - Ear disorder [Unknown]
